FAERS Safety Report 10742290 (Version 1)
Quarter: 2015Q1

REPORT INFORMATION
  Report Type: Spontaneous
  Country: US (occurrence: None)
  Receive Date: 20150126
  Receipt Date: 20150126
  Transmission Date: 20150721
  Serious: Yes (Hospitalization)
  Sender: FDA-Public Use
  Company Number: 2015CT000013

PATIENT
  Sex: Male

DRUGS (10)
  1. FARXIGA [Concomitant]
     Active Substance: DAPAGLIFLOZIN PROPANEDIOL
  2. L THYROXINE [Concomitant]
     Active Substance: LEVOTHYROXINE SODIUM
  3. ATENOLOL. [Concomitant]
     Active Substance: ATENOLOL
  4. BYDUREON [Concomitant]
     Active Substance: EXENATIDE
  5. KORLYM [Suspect]
     Active Substance: MIFEPRISTONE
     Indication: PITUITARY-DEPENDENT CUSHING^S SYNDROME
     Route: 048
     Dates: start: 201404
  6. LOSARTAN [Concomitant]
     Active Substance: LOSARTAN
  7. ASPIRIN. [Concomitant]
     Active Substance: ASPIRIN
  8. CRESTOR [Concomitant]
     Active Substance: ROSUVASTATIN CALCIUM
  9. CITALOPRAM [Concomitant]
     Active Substance: CITALOPRAM HYDROBROMIDE
  10. FLECAINIDE [Concomitant]
     Active Substance: FLECAINIDE

REACTIONS (2)
  - Sphenoid sinus operation [None]
  - Electrocardiogram QT prolonged [None]
